FAERS Safety Report 9951586 (Version 1)
Quarter: 2014Q1

REPORT INFORMATION
  Report Type: Spontaneous
  Country: US (occurrence: US)
  Receive Date: 20140304
  Receipt Date: 20140304
  Transmission Date: 20141002
  Serious: No
  Sender: FDA-Public Use
  Company Number: US-ABBVIE-13P-163-1079191-00

PATIENT
  Age: 76 Year
  Sex: Female

DRUGS (13)
  1. HUMIRA [Suspect]
     Indication: CROHN^S DISEASE
     Route: 058
     Dates: start: 20130124, end: 20130124
  2. HUMIRA [Suspect]
     Route: 058
     Dates: start: 20130207, end: 20130207
  3. HUMIRA [Suspect]
     Route: 058
     Dates: start: 20130221
  4. LEVOTHYROXINE [Concomitant]
     Indication: THYROID DISORDER
  5. METOPROLOL [Concomitant]
     Indication: HYPERTENSION
  6. FOLIC ACID [Concomitant]
     Indication: PRODUCT USED FOR UNKNOWN INDICATION
  7. LOMOTIL [Concomitant]
     Indication: DIARRHOEA
  8. VITAMIN B 12 [Concomitant]
     Indication: PRODUCT USED FOR UNKNOWN INDICATION
  9. BONIVA [Concomitant]
     Indication: OSTEOPOROSIS PROPHYLAXIS
  10. CALTRATE + D [Concomitant]
     Indication: OSTEOPOROSIS PROPHYLAXIS
  11. NEXIUM [Concomitant]
     Indication: CROHN^S DISEASE
  12. FIORICET [Concomitant]
     Indication: MIGRAINE
  13. AMBIEN [Concomitant]
     Indication: INSOMNIA

REACTIONS (6)
  - Incorrect dose administered [Recovered/Resolved]
  - Injection site pain [Recovered/Resolved]
  - Injection site haemorrhage [Recovered/Resolved]
  - Injury associated with device [Unknown]
  - Wrong technique in drug usage process [Unknown]
  - Incorrect route of drug administration [Unknown]
